FAERS Safety Report 16849507 (Version 7)
Quarter: 2020Q4

REPORT INFORMATION
  Report Type: Spontaneous
  Country: US (occurrence: US)
  Receive Date: 20190925
  Receipt Date: 20201130
  Transmission Date: 20210113
  Serious: No
  Sender: FDA-Public Use
  Company Number: US-PHARMING-PHAUS2019000550

PATIENT

DRUGS (3)
  1. RUCONEST [Suspect]
     Active Substance: HUMAN C1-ESTERASE INHIBITOR
     Indication: HEREDITARY ANGIOEDEMA
     Dosage: 4125 IU INTERNATIONAL UNIT(S), TWICE WEEKLY
     Route: 042
     Dates: start: 20180508
  2. RUCONEST [Suspect]
     Active Substance: HUMAN C1-ESTERASE INHIBITOR
     Indication: HEREDITARY ANGIOEDEMA
     Dosage: 4125 IU INTERNATIONAL UNIT(S), TWICE WEEKLY
     Route: 042
     Dates: start: 20180508
  3. RUCONEST [Suspect]
     Active Substance: HUMAN C1-ESTERASE INHIBITOR
     Dosage: 4125 IU, TWICE WEEKLY, EVERY MONDAY AND WEDNESDAY
     Dates: start: 20180508

REACTIONS (2)
  - Product dose omission issue [Unknown]
  - Intentional product use issue [Unknown]
